FAERS Safety Report 7424276-1 (Version None)
Quarter: 2011Q2

REPORT INFORMATION
  Report Type: 
  Country: None (occurrence: None)
  Receive Date: 20110411
  Receipt Date: 20110325
  Transmission Date: 20111010
  Serious: Yes (Other)
  Sender: FDA-Public Use
  Company Number: 2011-00384

PATIENT
  Age: 60 Year
  Sex: Male
  Weight: 77.2 kg

DRUGS (6)
  1. OMEPRAZOLE [Concomitant]
  2. SIMVASTATIN [Suspect]
     Indication: PRODUCT USED FOR UNKNOWN INDICATION
     Dates: start: 20101129
  3. ATORVASTATIN (UNKNOWN) [Concomitant]
  4. KETOPROFEN (UNKNOWN) [Concomitant]
  5. CODEINE PHOSPHATE/ PARACETAMOL (CO-CODAMOL) (UNKNOWN) [Concomitant]
  6. PARACETAMOL (UNKNOWN) [Concomitant]

REACTIONS (1)
  - MOUTH ULCERATION [None]
